FAERS Safety Report 6653981-X (Version None)
Quarter: 2010Q1

REPORT INFORMATION
  Report Type: 
  Country: None (occurrence: None)
  Receive Date: 20100326
  Receipt Date: 20100319
  Transmission Date: 20100710
  Serious: Yes (Hospitalization)
  Sender: FDA-Public Use
  Company Number: IT-TEVA-222652ISR

PATIENT
  Sex: Male

DRUGS (5)
  1. VINCRISTINE [Suspect]
     Indication: NON-HODGKIN'S LYMPHOMA
     Route: 042
     Dates: start: 20090608, end: 20090608
  2. CYCLOPHOSPHAMIDE [Suspect]
     Indication: NON-HODGKIN'S LYMPHOMA
     Route: 042
     Dates: start: 20090608, end: 20090608
  3. DOXORUBICIN HCL [Suspect]
     Indication: NON-HODGKIN'S LYMPHOMA
     Route: 042
     Dates: start: 20090608, end: 20090608
  4. METHYLPREDNISOLONE SODIUM SUCCINATE [Suspect]
     Indication: NON-HODGKIN'S LYMPHOMA
     Route: 042
     Dates: start: 20090608, end: 20090608
  5. ACYCLOVIR SODIUM [Concomitant]
     Route: 042
     Dates: start: 20090602, end: 20090612

REACTIONS (3)
  - HYPERPYREXIA [None]
  - MELAENA [None]
  - ORAL CANDIDIASIS [None]
